FAERS Safety Report 5883972-8 (Version None)
Quarter: 2008Q3

REPORT INFORMATION
  Report Type: 
  Country: None (occurrence: None)
  Receive Date: 20080912
  Receipt Date: 20080912
  Transmission Date: 20090109
  Serious: Yes (Hospitalization)
  Sender: FDA-Public Use
  Company Number: None

PATIENT
  Sex: Female
  Weight: 59 kg

DRUGS (4)
  1. CISPLATIN [Suspect]
     Dosage: 78 MG
  2. DOXORUBICIN HYDROCHLORIDE [Suspect]
     Dosage: 70 MG
  3. TAXOL [Suspect]
     Dosage: 250 MG
  4. NEULASTA [Suspect]
     Dosage: 6 MG

REACTIONS (9)
  - ASCITES [None]
  - DEEP VEIN THROMBOSIS [None]
  - METASTASES TO LIVER [None]
  - NAUSEA [None]
  - NEUTROPENIA [None]
  - PLATELET COUNT DECREASED [None]
  - PLEURAL EFFUSION [None]
  - PULMONARY EMBOLISM [None]
  - WHITE BLOOD CELL COUNT DECREASED [None]
